FAERS Safety Report 16801846 (Version 6)
Quarter: 2019Q4

REPORT INFORMATION
  Report Type: Report from Study
  Country: US (occurrence: US)
  Receive Date: 20190912
  Receipt Date: 20191218
  Transmission Date: 20200122
  Serious: No
  Sender: FDA-Public Use
  Company Number: US-SA-2019SA241970

PATIENT
  Age: 81 Year
  Sex: Female

DRUGS (10)
  1. BABY ASPIRIN [Concomitant]
     Active Substance: ASPIRIN
     Dosage: UNK UNK, QD
  2. VITAMINS NOS [Concomitant]
     Active Substance: VITAMINS
  3. HYDROCHLOROTHIAZIDE. [Concomitant]
     Active Substance: HYDROCHLOROTHIAZIDE
  4. TETANUS TOXOID ADSORBED (VACCINE) [Concomitant]
     Active Substance: CLOSTRIDIUM TETANI TOXOID ANTIGEN (FORMALDEHYDE INACTIVATED)
     Indication: PROPHYLAXIS
  5. ALIROCUMAB [Suspect]
     Active Substance: ALIROCUMAB
     Indication: HYPERLIPIDAEMIA
     Dosage: UNK
     Dates: start: 20191023, end: 201911
  6. ZETIA [Concomitant]
     Active Substance: EZETIMIBE
  7. ALIROCUMAB [Suspect]
     Active Substance: ALIROCUMAB
     Indication: BLOOD CHOLESTEROL ABNORMAL
     Dosage: UNK, QOW
     Dates: start: 20190812, end: 2019
  8. KENALOG [Concomitant]
     Active Substance: TRIAMCINOLONE ACETONIDE
     Indication: ARTHROPATHY
  9. ROSUVASTATIN. [Concomitant]
     Active Substance: ROSUVASTATIN
  10. BENAZEPRIL [Concomitant]
     Active Substance: BENAZEPRIL HYDROCHLORIDE

REACTIONS (16)
  - Gastrointestinal disorder [Recovering/Resolving]
  - Injection site bruising [Unknown]
  - Injection site haemorrhage [Unknown]
  - Injection site pain [Recovered/Resolved]
  - Alopecia [Unknown]
  - Injection site reaction [Recovered/Resolved]
  - Red blood cell sedimentation rate increased [Unknown]
  - Injection site warmth [Unknown]
  - Malaise [Recovered/Resolved]
  - Tongue discomfort [Recovered/Resolved]
  - Infection [Recovered/Resolved]
  - Limb injury [Unknown]
  - Wrong technique in device usage process [Unknown]
  - Throat tightness [Recovered/Resolved]
  - Fall [Unknown]
  - Pruritus [Unknown]

NARRATIVE: CASE EVENT DATE: 2019
